FAERS Safety Report 23563653 (Version 3)
Quarter: 2025Q2

REPORT INFORMATION
  Report Type: Report from Study
  Country: US (occurrence: US)
  Receive Date: 20240226
  Receipt Date: 20250609
  Transmission Date: 20250716
  Serious: Yes (Hospitalization, Other)
  Sender: TAKEDA
  Company Number: US-TAKEDA-2021TUS056856

PATIENT
  Age: 58 Year
  Sex: Female

DRUGS (5)
  1. ICATIBANT [Suspect]
     Active Substance: ICATIBANT ACETATE
     Indication: Angioedema
  2. ICATIBANT [Suspect]
     Active Substance: ICATIBANT ACETATE
     Indication: Immune system disorder
  3. TAKHZYRO [Suspect]
     Active Substance: LANADELUMAB-FLYO
     Indication: Angioedema
     Dosage: 300 MILLIGRAM, Q2WEEKS
  4. TAKHZYRO [Suspect]
     Active Substance: LANADELUMAB-FLYO
  5. TAKHZYRO [Suspect]
     Active Substance: LANADELUMAB-FLYO

REACTIONS (5)
  - Vertigo [Unknown]
  - Pneumonia [Unknown]
  - Bronchitis [Unknown]
  - Polycythaemia [Unknown]
  - Dizziness [Unknown]

NARRATIVE: CASE EVENT DATE: 20210910
